FAERS Safety Report 9696769 (Version 3)
Quarter: 2015Q3

REPORT INFORMATION
  Report Type: Spontaneous
  Country: US (occurrence: US)
  Receive Date: 20131119
  Receipt Date: 20150803
  Transmission Date: 20151125
  Serious: No
  Sender: FDA-Public Use
  Company Number: US-GILEAD-2007-0014525

PATIENT
  Sex: Female
  Weight: 73.03 kg

DRUGS (7)
  1. PRINIVIL [Concomitant]
     Active Substance: LISINOPRIL
     Route: 048
  2. LIPITOR [Concomitant]
     Active Substance: ATORVASTATIN CALCIUM
     Dosage: Q HS
     Route: 048
  3. LASIX [Concomitant]
     Active Substance: FUROSEMIDE
     Route: 048
  4. PROBENECID. [Concomitant]
     Active Substance: PROBENECID
     Route: 048
  5. COUMADIN [Concomitant]
     Active Substance: WARFARIN SODIUM
     Route: 048
  6. LANOXIN [Concomitant]
     Active Substance: DIGOXIN
     Route: 048
  7. LETAIRIS [Suspect]
     Active Substance: AMBRISENTAN
     Indication: PULMONARY ARTERIAL HYPERTENSION
     Route: 048
     Dates: start: 20071023, end: 20071212

REACTIONS (2)
  - Dyspnoea [None]
  - Peripheral swelling [None]
